FAERS Safety Report 13123547 (Version 6)
Quarter: 2018Q1

REPORT INFORMATION
  Report Type: Spontaneous
  Country: US (occurrence: US)
  Receive Date: 20170117
  Receipt Date: 20180322
  Transmission Date: 20180508
  Serious: Yes (Hospitalization)
  Sender: FDA-Public Use
  Company Number: US-ACTELION-A-US2017-148144

PATIENT
  Age: 59 Year
  Sex: Male
  Weight: 134.24 kg

DRUGS (7)
  1. LETAIRIS [Concomitant]
     Active Substance: AMBRISENTAN
     Dosage: 10 MG, QD
  2. SILDENAFIL. [Concomitant]
     Active Substance: SILDENAFIL
  3. PREDNISONE. [Concomitant]
     Active Substance: PREDNISONE
     Dosage: 1 MG, QD
     Dates: start: 20160412
  4. VELETRI [Suspect]
     Active Substance: EPOPROSTENOL
     Indication: PULMONARY ARTERIAL HYPERTENSION
     Dosage: 14 NG/KG, PER MIN
     Route: 042
  5. VELETRI [Suspect]
     Active Substance: EPOPROSTENOL
     Dosage: 12 NG/KG, PER MIN
     Route: 042
  6. VELETRI [Suspect]
     Active Substance: EPOPROSTENOL
     Dosage: UNK
     Route: 042
     Dates: start: 20151218
  7. METHOTREXATE. [Concomitant]
     Active Substance: METHOTREXATE
     Dosage: 1.5 MG, Q1WEEK
     Dates: start: 2016

REACTIONS (20)
  - Oxygen saturation decreased [Unknown]
  - Thrombocytopenia [Recovered/Resolved]
  - Pulmonary arterial hypertension [Unknown]
  - Pain in jaw [Recovered/Resolved]
  - Fatigue [Unknown]
  - Cardiac failure [Unknown]
  - Arthralgia [Unknown]
  - Catheter site erythema [Unknown]
  - Peripheral swelling [Unknown]
  - Fluid retention [Unknown]
  - Productive cough [Unknown]
  - Loss of consciousness [Unknown]
  - Right ventricular failure [Recovered/Resolved]
  - Mucosal discolouration [Unknown]
  - Fluid overload [Unknown]
  - Dyspnoea [Unknown]
  - Asthenia [Unknown]
  - Flushing [Recovered/Resolved]
  - Dyspnoea exertional [Unknown]
  - Nasopharyngitis [Unknown]

NARRATIVE: CASE EVENT DATE: 20151220
